FAERS Safety Report 15074734 (Version 1)
Quarter: 2018Q2

REPORT INFORMATION
  Report Type: Spontaneous
  Country: US (occurrence: US)
  Receive Date: 20180627
  Receipt Date: 20180627
  Transmission Date: 20180711
  Serious: Yes (Hospitalization, Other)
  Sender: FDA-Public Use
  Company Number: US-SAOL THERAPEUTICS-2017SAO01190

PATIENT
  Age: 10 Year
  Sex: Male
  Weight: 25.8 kg

DRUGS (19)
  1. LIORESAL [Suspect]
     Active Substance: BACLOFEN
     Indication: MUSCLE SPASTICITY
     Dosage: 1400 ?G, \DAY
     Route: 037
     Dates: end: 2016
  2. LIORESAL [Suspect]
     Active Substance: BACLOFEN
     Dosage: 1200 ?G, \DAY
     Route: 037
     Dates: start: 2012
  3. LIORESAL [Suspect]
     Active Substance: BACLOFEN
     Dosage: 925 ?G, \DAY
     Route: 037
     Dates: start: 2016
  4. ERYPED [Concomitant]
     Active Substance: ERYTHROMYCIN ETHYLSUCCINATE
  5. PANTOPRAZOLE [Concomitant]
     Active Substance: PANTOPRAZOLE
  6. CETIRIZINE [Concomitant]
     Active Substance: CETIRIZINE HYDROCHLORIDE
  7. VALPROIC ACID. [Concomitant]
     Active Substance: VALPROIC ACID
  8. LIORESAL [Suspect]
     Active Substance: BACLOFEN
     Dosage: 499.6 ?G, \DAY
     Route: 037
     Dates: start: 20170708
  9. AZATHIOPRINE. [Concomitant]
     Active Substance: AZATHIOPRINE
  10. LIORESAL [Suspect]
     Active Substance: BACLOFEN
     Dosage: 450 ?G \DAY
  11. LORATADINE. [Concomitant]
     Active Substance: LORATADINE
  12. CLONAZEPAM. [Concomitant]
     Active Substance: CLONAZEPAM
  13. QVAR [Concomitant]
     Active Substance: BECLOMETHASONE DIPROPIONATE
  14. CUVPOSA [Concomitant]
     Active Substance: GLYCOPYRROLATE
  15. GABAPENTIN. [Concomitant]
     Active Substance: GABAPENTIN
  16. PROVENTIL [Concomitant]
     Active Substance: ALBUTEROL
  17. SCOPOLAMINE [Concomitant]
     Active Substance: SCOPOLAMINE
     Indication: MUSCLE SPASTICITY
  18. MELATONIN [Concomitant]
     Active Substance: MELATONIN
  19. FLONASE [Concomitant]
     Active Substance: FLUTICASONE PROPIONATE

REACTIONS (7)
  - Incorrect route of drug administration [Unknown]
  - Unresponsive to stimuli [Unknown]
  - Device leakage [Recovered/Resolved]
  - Hypothermia [Unknown]
  - Device infusion issue [Unknown]
  - Mental status changes [Unknown]
  - Overdose [Unknown]

NARRATIVE: CASE EVENT DATE: 20170707
